FAERS Safety Report 17884143 (Version 1)
Quarter: 2020Q2

REPORT INFORMATION
  Report Type: Spontaneous
  Country: US (occurrence: US)
  Receive Date: 20200610
  Receipt Date: 20200610
  Transmission Date: 20200714
  Serious: Yes (Hospitalization, Other)
  Sender: FDA-Public Use
  Company Number: None

PATIENT
  Age: 62 Year
  Sex: Female
  Weight: 117 kg

DRUGS (1)
  1. CEFPODOXIME [Suspect]
     Active Substance: CEFPODOXIME
     Indication: RESPIRATORY TRACT INFECTION
     Dates: start: 20200207, end: 20200229

REACTIONS (3)
  - Fungal infection [None]
  - Blood glucose increased [None]
  - Product prescribing error [None]

NARRATIVE: CASE EVENT DATE: 20200601
